FAERS Safety Report 5782217-7 (Version None)
Quarter: 2008Q2

REPORT INFORMATION
  Report Type: 
  Country: None (occurrence: None)
  Receive Date: 20080623
  Receipt Date: 20021118
  Transmission Date: 20081010
  Serious: No
  Sender: FDA-Public Use
  Company Number: US-ABBOTT-08P-163-0454519-00

PATIENT

DRUGS (1)
  1. SEVOFLURANE [Suspect]
     Indication: DRUG USE FOR UNKNOWN INDICATION

REACTIONS (1)
  - LIVER FUNCTION TEST ABNORMAL [None]
